FAERS Safety Report 8669986 (Version 2)
Quarter: 2012Q4

REPORT INFORMATION
  Report Type: 
  Country: DK (occurrence: CA)
  Receive Date: 20120718
  Receipt Date: 20120914
  Transmission Date: 20130627
  Serious: Yes (Life-Threatening, Other)
  Sender: FDA-Public Use
  Company Number: CA-FRI-1000037054

PATIENT
  Age: 0 Year
  Sex: Male
  Weight: 3 kg

DRUGS (1)
  1. CELEXA [Suspect]
     Dosage: 20 mg
     Route: 064
     Dates: end: 20120327

REACTIONS (5)
  - Foetal exposure during pregnancy [Unknown]
  - Dyspnoea [Unknown]
  - Hypertonia [Unknown]
  - Infantile apnoeic attack [Unknown]
  - Withdrawal syndrome [Unknown]
